FAERS Safety Report 6531694-2 (Version None)
Quarter: 2010Q1

REPORT INFORMATION
  Report Type: 
  Country: None (occurrence: None)
  Receive Date: 20100108
  Receipt Date: 20091230
  Transmission Date: 20100710
  Serious: Yes (Other)
  Sender: FDA-Public Use
  Company Number: US-PFIZER INC-2009291741

PATIENT
  Sex: Male
  Weight: 79.365 kg

DRUGS (2)
  1. LIPITOR [Suspect]
     Indication: BLOOD CHOLESTEROL INCREASED
     Dosage: 40 MG, UNK
     Route: 048
     Dates: start: 20090727
  2. LIPITOR [Suspect]
     Dosage: 20 MG, DAILY
     Route: 048
     Dates: start: 20090923

REACTIONS (7)
  - HYPOAESTHESIA [None]
  - MUSCULOSKELETAL STIFFNESS [None]
  - OEDEMA PERIPHERAL [None]
  - PAIN IN EXTREMITY [None]
  - TENDON DISORDER [None]
  - TENDONITIS [None]
  - TRIGGER FINGER [None]
